FAERS Safety Report 5716951-1 (Version None)
Quarter: 2008Q2

REPORT INFORMATION
  Report Type: 
  Country: None (occurrence: None)
  Receive Date: 20080424
  Receipt Date: 20080422
  Transmission Date: 20081010
  Serious: Yes (Hospitalization)
  Sender: FDA-Public Use
  Company Number: US-MERCK-0804USA03639

PATIENT
  Age: 74 Year
  Sex: Female

DRUGS (7)
  1. ZOCOR [Suspect]
     Indication: BLOOD CHOLESTEROL
     Route: 048
     Dates: start: 20061001
  2. ZOCOR [Suspect]
     Route: 048
     Dates: start: 20080130
  3. SYNTHROID [Concomitant]
     Route: 065
  4. PLAVIX [Concomitant]
     Route: 065
  5. NEXIUM [Concomitant]
     Route: 065
  6. DIOVAN [Concomitant]
     Route: 065
  7. KLONOPIN [Concomitant]
     Route: 065

REACTIONS (2)
  - BLOOD CHOLESTEROL INCREASED [None]
  - MYOCARDIAL INFARCTION [None]
